FAERS Safety Report 8746282 (Version 2)
Quarter: 2013Q4

REPORT INFORMATION
  Report Type: Spontaneous
  Country: US (occurrence: US)
  Receive Date: 20120827
  Receipt Date: 20131031
  Transmission Date: 20140711
  Serious: No
  Sender: FDA-Public Use
  Company Number: US-009507513-2012SP019336

PATIENT
  Sex: Female
  Weight: 59.88 kg

DRUGS (2)
  1. IMPLANON [Suspect]
     Indication: CONTRACEPTION
     Dosage: 1 DF, UNK
     Route: 059
     Dates: start: 20120229, end: 20120411
  2. PNV [Concomitant]
     Indication: PREGNANCY
     Dosage: UNK, QD
     Dates: start: 20120411

REACTIONS (2)
  - Maternal exposure during pregnancy [Unknown]
  - Inappropriate schedule of drug administration [Unknown]
